FAERS Safety Report 8588994 (Version 4)
Quarter: 2012Q4

REPORT INFORMATION
  Report Type: 
  Country: US (occurrence: US)
  Receive Date: 20120531
  Receipt Date: 20121001
  Transmission Date: 20130627
  Serious: Yes (Hospitalization, Other)
  Sender: FDA-Public Use
  Company Number: US-ELI_LILLY_AND_COMPANY-US201205008284

PATIENT
  Age: 67 Year
  Sex: Female

DRUGS (17)
  1. FORTEO [Suspect]
     Indication: OSTEOPOROSIS
     Dosage: 20 ug, qd
     Route: 058
     Dates: start: 20120223
  2. FORTEO [Suspect]
     Dosage: 20 ug, qd
     Dates: start: 201203
  3. MOTRIN [Concomitant]
     Dosage: UNK, prn
  4. TUSSIONEX [Concomitant]
     Indication: NASOPHARYNGITIS
     Dosage: UNK
  5. NITROSTAT [Concomitant]
     Indication: CHEST PAIN
     Dosage: UNK
     Route: 060
     Dates: start: 201107
  6. ASPIRIN [Concomitant]
     Indication: STENT PLACEMENT
     Dosage: 325 mg, qd
  7. EFFIENT [Concomitant]
     Indication: STENT PLACEMENT
     Dosage: 10 mg, qd
  8. METFORMIN [Concomitant]
     Dosage: 500 mg, bid
     Route: 048
  9. KLONOPIN [Concomitant]
     Dosage: 0.5 mg, bid
  10. LISINOPRIL [Concomitant]
     Dosage: 5 mg, qd
  11. CELEXA [Concomitant]
     Dosage: 40 mg, qd
     Route: 048
  12. HYDROCODONE BITARTRATE AND ACETAMINOPHEN [Concomitant]
     Indication: PAIN
     Dosage: 30 DF, prn
  13. CENTRUM SILVER [Concomitant]
     Dosage: UNK
  14. VIACTIV                                 /USA/ [Concomitant]
     Dosage: UNK, qd
  15. VITAMIN B12 [Concomitant]
     Dosage: 250 ug, qd
     Route: 060
  16. PREMARIN [Concomitant]
     Dosage: UNK, other
  17. BUSPIRONE HCL [Concomitant]
     Dosage: 10 mg, bid

REACTIONS (5)
  - Femur fracture [Unknown]
  - Fall [Unknown]
  - Haemorrhage [Unknown]
  - Asthenia [Unknown]
  - Medication error [Unknown]
